FAERS Safety Report 25872467 (Version 2)
Quarter: 2025Q4

REPORT INFORMATION
  Report Type: Spontaneous
  Country: GB (occurrence: GB)
  Receive Date: 20251002
  Receipt Date: 20251022
  Transmission Date: 20260117
  Serious: Yes (Death, Hospitalization)
  Sender: TEVA
  Company Number: GB-TEVA-VS-3376791

PATIENT
  Age: 70 Year
  Sex: Male

DRUGS (3)
  1. LOPERAMIDE [Suspect]
     Active Substance: LOPERAMIDE
     Indication: Colitis
     Route: 065
     Dates: start: 2022
  2. LOPERAMIDE [Suspect]
     Active Substance: LOPERAMIDE
     Indication: Colitis
     Dosage: UP TO FOUR TIMES A DAY AS NEEDED
     Route: 065
     Dates: start: 202211
  3. CAPECITABINE [Suspect]
     Active Substance: CAPECITABINE
     Indication: Colon cancer stage II
     Dosage: EQUIVALENT TO 2500MG TWICE A DAY (14 DAYS IN A 21 DAY CYCLE)
     Route: 065
     Dates: start: 20221018

REACTIONS (9)
  - Toxicity to various agents [Fatal]
  - Drug ineffective [Fatal]
  - Abdominal pain [Fatal]
  - Intestinal ischaemia [Fatal]
  - Rash [Fatal]
  - Lip ulceration [Fatal]
  - Dry skin [Fatal]
  - Hypophagia [Fatal]
  - Colitis [Fatal]

NARRATIVE: CASE EVENT DATE: 20220101
